FAERS Safety Report 8932818 (Version 1)
Quarter: 2012Q4

REPORT INFORMATION
  Report Type: 
  Country: US (occurrence: US)
  Receive Date: 20121128
  Receipt Date: 20121128
  Transmission Date: 20130627
  Serious: Yes (Life-Threatening, Other)
  Sender: FDA-Public Use
  Company Number: GXBR2012US002319

PATIENT
  Age: 70 Year
  Sex: Female

DRUGS (21)
  1. ATENOLOL TABLETS, USP [Suspect]
     Dosage: 50 mg, QD
     Route: 048
  2. LEXISCAN [Suspect]
     Indication: SCAN MYOCARDIAL PERFUSION
     Dosage: 0.4 mg, ONCE/SINGLE
     Dates: start: 20120428, end: 20120428
  3. DICLOFENAC [Concomitant]
     Dosage: UNK DF, UNK
  4. LEUCOVORIN [Concomitant]
     Dosage: UNK DF, UNK
  5. METHOTREXATE [Concomitant]
     Dosage: UNK DF, UNK
  6. ZOCOR [Concomitant]
  7. AMBIEN [Concomitant]
     Dosage: UNK DF, UNK
  8. ORENCIA [Concomitant]
     Dosage: UNK DF, UNK
  9. OMEPRAZOLE [Concomitant]
     Dosage: UNK DF, UNK
  10. ALENDRONATE [Concomitant]
     Dosage: UNK DF, UNK
  11. CALCIUM + VIT D [Concomitant]
     Dosage: UNK DF, UNK
  12. LEXAPRO [Concomitant]
     Dosage: UNK DF, UNK
  13. CITALOPRAM [Concomitant]
     Dosage: UNK DF, UNK
  14. ASPIRIN [Concomitant]
     Dosage: UNK DF, UNK
  15. BISACODYL [Concomitant]
     Dosage: UNK DF, UNK
  16. MILK OF MAGNESIA [Concomitant]
     Dosage: UNK DF, UNK
  17. MAGNESIUM SULFATE [Concomitant]
     Dosage: UNK DF, UNK
  18. POTASSIUM CHLORIDE [Concomitant]
     Dosage: UNK DF, UNK
  19. COMPAZINE [Concomitant]
     Dosage: UNK DF, UNK
  20. FLEET ENEMA                             /CAN/ [Concomitant]
     Dosage: UNK DF, UNK
  21. TUMS [Concomitant]
     Dosage: UNK DF, UNK

REACTIONS (10)
  - Cardiac arrest [Recovered/Resolved]
  - Convulsion [Recovered/Resolved]
  - Ventricular extrasystoles [Recovered/Resolved]
  - Nodal rhythm [Recovered/Resolved]
  - Somnolence [Recovered/Resolved]
  - Vomiting [Recovered/Resolved]
  - Nausea [Recovered/Resolved]
  - Chest pain [None]
  - Blood pressure systolic increased [None]
  - Sinus bradycardia [None]
